FAERS Safety Report 7509104-8 (Version None)
Quarter: 2011Q2

REPORT INFORMATION
  Report Type: 
  Country: None (occurrence: None)
  Receive Date: 20110527
  Receipt Date: 20110516
  Transmission Date: 20111010
  Serious: Yes (Other)
  Sender: FDA-Public Use
  Company Number: FI-JNJFOC-20110507055

PATIENT
  Age: 30 Year
  Sex: Female

DRUGS (3)
  1. AZATHIOPRINE [Concomitant]
  2. REMICADE [Suspect]
     Indication: COLITIS ULCERATIVE
     Route: 042
     Dates: start: 20110429
  3. REMICADE [Suspect]
     Route: 042
     Dates: start: 20100801

REACTIONS (2)
  - SENSORY LOSS [None]
  - MUSCULAR WEAKNESS [None]
